FAERS Safety Report 9631792 (Version 1)
Quarter: 2013Q4

REPORT INFORMATION
  Report Type: Spontaneous
  Country: IE (occurrence: None)
  Receive Date: 20131015
  Receipt Date: 20131015
  Transmission Date: 20140711
  Serious: Yes (Other)
  Sender: FDA-Public Use
  Company Number: FK201304520

PATIENT
  Age: 65 Year
  Sex: Male

DRUGS (3)
  1. TRANEXAMIC ACID [Suspect]
     Indication: PRODUCT USED FOR UNKNOWN INDICATION
     Dosage: 1 GM, 1 IN 1 ONCE, INTRAVENOUS BOLUS
  2. ANESTHETICS [Concomitant]
  3. TINZAPARIN [Concomitant]

REACTIONS (3)
  - Cerebral infarction [None]
  - Pulmonary embolism [None]
  - Hyperreflexia [None]
